FAERS Safety Report 21409838 (Version 6)
Quarter: 2024Q3

REPORT INFORMATION
  Report Type: Spontaneous
  Country: BR (occurrence: BR)
  Receive Date: 20221005
  Receipt Date: 20240803
  Transmission Date: 20241016
  Serious: Yes (Hospitalization, Other)
  Sender: CELLTRION
  Company Number: BR-CELLTRION INC.-2022BR015968

PATIENT

DRUGS (4)
  1. INFLIXIMAB [Suspect]
     Active Substance: INFLIXIMAB
     Indication: Crohn^s disease
     Dosage: 3 AMPOULES (100MG) EVERY 6 WEEKS
     Route: 042
     Dates: start: 20220827
  2. INFLIXIMAB [Suspect]
     Active Substance: INFLIXIMAB
     Dosage: 3 AMPOULES 100 MG EACH (300MG) EVERY 45 DAYS
     Route: 042
     Dates: start: 20240603
  3. INFLIXIMAB [Suspect]
     Active Substance: INFLIXIMAB
     Dosage: 3 AMPOULES 100 MG EACH (300MG) EVERY 45 DAYS
     Route: 042
     Dates: start: 20240723
  4. AZATHIOPRINE [Concomitant]
     Active Substance: AZATHIOPRINE
     Indication: Crohn^s disease
     Dosage: 2 PILLS PER DAY
     Route: 048
     Dates: start: 201104

REACTIONS (10)
  - Underweight [Unknown]
  - Splenic infection fungal [Unknown]
  - Paracoccidioides infection [Unknown]
  - Gastric infection [Recovered/Resolved]
  - Illness [Recovered/Resolved]
  - Pain [Unknown]
  - Intentional dose omission [Unknown]
  - Intentional product use issue [Unknown]
  - Contraindication to medical treatment [Unknown]
  - Overdose [Unknown]
